FAERS Safety Report 8262752-2 (Version None)
Quarter: 2012Q2

REPORT INFORMATION
  Report Type: 
  Country: None (occurrence: None)
  Receive Date: 20120405
  Receipt Date: 20120330
  Transmission Date: 20120825
  Serious: Yes (Other)
  Sender: FDA-Public Use
  Company Number: TR-BAYER-2012-031280

PATIENT
  Age: 51 Year
  Sex: Female

DRUGS (3)
  1. DULOXETINE HYDROCHLORIDE [Interacting]
     Indication: PANIC DISORDER
     Dosage: 60 MG, QD
     Route: 048
  2. CIPROFLOXACIN HYDROCHLORIDE [Suspect]
     Indication: URINARY TRACT INFECTION
     Dosage: 750 MG, BID
     Route: 048
  3. NEBIVOLOL [Concomitant]
     Indication: HYPERTENSION
     Dosage: 5 MG, QD
     Route: 048

REACTIONS (1)
  - SEROTONIN SYNDROME [None]
